FAERS Safety Report 6406149-6 (Version None)
Quarter: 2009Q4

REPORT INFORMATION
  Report Type: 
  Country: None (occurrence: None)
  Receive Date: 20091019
  Receipt Date: 20091007
  Transmission Date: 20100525
  Serious: Yes (Hospitalization)
  Sender: FDA-Public Use
  Company Number: US-ELI_LILLY_AND_COMPANY-US200910002523

PATIENT
  Age: 44 Year
  Sex: Male

DRUGS (4)
  1. FLUOXETINE HCL [Suspect]
     Indication: DEPRESSED MOOD
     Dosage: 20 MG, DAILY (1/D)
     Route: 065
  2. FLUOXETINE HCL [Interacting]
     Dosage: 40 MG, DAILY (1/D)
     Route: 065
  3. FLUPHENAZINE [Interacting]
     Indication: PARANOIA
     Dosage: 2.5 MG, OTHER
     Route: 065
  4. FLUPHENAZINE [Interacting]
     Dosage: 2.5 MG, EACH EVENING
     Route: 065

REACTIONS (7)
  - AKATHISIA [None]
  - ANGER [None]
  - DRUG INTERACTION [None]
  - JOINT STIFFNESS [None]
  - PAIN IN JAW [None]
  - SPASMODIC DYSPHONIA [None]
  - THROAT TIGHTNESS [None]
